FAERS Safety Report 9225502 (Version 2)
Quarter: 2013Q2

REPORT INFORMATION
  Report Type: Report from Study
  Country: DE (occurrence: DE)
  Receive Date: 20130411
  Receipt Date: 20130506
  Transmission Date: 20140414
  Serious: Yes (Other)
  Sender: FDA-Public Use
  Company Number: DE-ROCHE-1209009

PATIENT
  Sex: 0

DRUGS (2)
  1. ALTEPLASE [Suspect]
     Indication: PERIPHERAL ARTERIAL OCCLUSIVE DISEASE
     Dosage: 2.5-5 MG, FOLLOWED BY 20 MG OVER 12-24 HOURS (FIRST CYCLE)
     Route: 013
  2. HEPARIN [Suspect]
     Indication: PERIPHERAL ARTERIAL REOCCLUSION
     Dosage: 5000 U
     Route: 013

REACTIONS (1)
  - Gastrointestinal ulcer [Unknown]
